FAERS Safety Report 24057009 (Version 2)
Quarter: 2024Q3

REPORT INFORMATION
  Report Type: Spontaneous
  Country: US (occurrence: US)
  Receive Date: 20240706
  Receipt Date: 20240808
  Transmission Date: 20241016
  Serious: Yes (Life-Threatening, Hospitalization, Other)
  Sender: AUROBINDO
  Company Number: US-MLMSERVICE-20240620-PI107421-00034-1

PATIENT
  Age: 3 Decade
  Sex: Female

DRUGS (3)
  1. AMIODARONE HYDROCHLORIDE [Suspect]
     Active Substance: AMIODARONE HYDROCHLORIDE
     Indication: Ventricular extrasystoles
     Dosage: UNK (TAPER)
     Route: 065
  2. AMIODARONE HYDROCHLORIDE [Suspect]
     Active Substance: AMIODARONE HYDROCHLORIDE
     Dosage: UNK
     Route: 065
  3. METOPROLOL [Suspect]
     Active Substance: METOPROLOL
     Indication: Ventricular extrasystoles
     Dosage: 12.5 MILLIGRAM, ONCE A DAY
     Route: 065

REACTIONS (4)
  - Hyperthyroidism [Unknown]
  - Dilated cardiomyopathy [Recovered/Resolved]
  - Ventricular extrasystoles [Recovered/Resolved]
  - Drug ineffective [Unknown]
